FAERS Safety Report 9704395 (Version 1)
Quarter: 2013Q4

REPORT INFORMATION
  Report Type: Spontaneous
  Country: US (occurrence: US)
  Receive Date: 20131122
  Receipt Date: 20131122
  Transmission Date: 20140711
  Serious: No
  Sender: FDA-Public Use
  Company Number: US-MYLANLABS-2013S1010632

PATIENT
  Age: 40 Year
  Sex: Female
  Weight: 83.92 kg

DRUGS (4)
  1. CLONAZEPAM TABLETS, USP [Suspect]
     Indication: ANXIETY
     Route: 048
     Dates: start: 2012
  2. CLONAZEPAM TABLETS, USP [Suspect]
     Indication: PANIC ATTACK
     Route: 048
     Dates: start: 2012
  3. CLONAZEPAM TABLETS, USP [Suspect]
     Indication: ANXIETY
     Route: 048
     Dates: start: 2012
  4. CLONAZEPAM TABLETS, USP [Suspect]
     Indication: PANIC ATTACK
     Route: 048
     Dates: start: 2012

REACTIONS (1)
  - Drug screen negative [Not Recovered/Not Resolved]
